FAERS Safety Report 9338784 (Version 2)
Quarter: 2013Q3

REPORT INFORMATION
  Report Type: Spontaneous
  Country: GB (occurrence: GB)
  Receive Date: 20130610
  Receipt Date: 20130715
  Transmission Date: 20140515
  Serious: Yes (Hospitalization, Other)
  Sender: FDA-Public Use
  Company Number: GB-ASTELLAS-2013EU004476

PATIENT
  Age: 76 Year
  Sex: Female
  Weight: 70 kg

DRUGS (5)
  1. VESICARE [Suspect]
     Indication: URGE INCONTINENCE
     Dosage: 5 MG, UID/QD
     Route: 048
     Dates: start: 20130404
  2. VESICARE [Suspect]
     Indication: URGE INCONTINENCE
     Dosage: 10 MG, UID/QD
     Route: 048
     Dates: start: 20130423, end: 20130521
  3. CO-CARELDOPA [Concomitant]
     Indication: PARKINSON^S DISEASE
     Dosage: UNK
     Route: 048
     Dates: start: 20120309
  4. RANITIDINE [Concomitant]
     Indication: GASTRIC PERFORATION
     Dosage: 150 MG, BID
     Route: 048
     Dates: start: 20130417
  5. ATORVASTATIN [Concomitant]
     Indication: HYPERLIPIDAEMIA
     Dosage: 10 MG, UID/QD
     Route: 048
     Dates: start: 20130103

REACTIONS (5)
  - Drug ineffective [Unknown]
  - Hallucination, visual [Not Recovered/Not Resolved]
  - Cerebrovascular accident [Unknown]
  - Amnesia [Unknown]
  - Confusional state [Not Recovered/Not Resolved]
